FAERS Safety Report 21298163 (Version 4)
Quarter: 2022Q4

REPORT INFORMATION
  Report Type: Spontaneous
  Country: US (occurrence: US)
  Receive Date: 20220906
  Receipt Date: 20221207
  Transmission Date: 20230113
  Serious: Yes (Other)
  Sender: FDA-Public Use
  Company Number: US-PFIZER INC-PV202200056188

PATIENT
  Age: 65 Year
  Sex: Female

DRUGS (2)
  1. XELJANZ [Suspect]
     Active Substance: TOFACITINIB CITRATE
     Dosage: UNK
     Dates: start: 202202, end: 2022
  2. BUDESONIDE [Suspect]
     Active Substance: BUDESONIDE
     Dosage: 3 MG, 2X/DAY
     Dates: start: 2022

REACTIONS (8)
  - Ulcer [Not Recovered/Not Resolved]
  - Drug ineffective [Unknown]
  - Fatigue [Unknown]
  - Defaecation urgency [Unknown]
  - Frequent bowel movements [Not Recovered/Not Resolved]
  - Secretion discharge [Unknown]
  - Burning sensation [Unknown]
  - Abdominal discomfort [Unknown]

NARRATIVE: CASE EVENT DATE: 20220101
